FAERS Safety Report 8351034-6 (Version None)
Quarter: 2012Q2

REPORT INFORMATION
  Report Type: 
  Country: None (occurrence: None)
  Receive Date: 20120510
  Receipt Date: 20120504
  Transmission Date: 20120825
  Serious: Yes (Other)
  Sender: FDA-Public Use
  Company Number: US-BAYER-201015291NA

PATIENT
  Age: 31 Year
  Sex: Female
  Weight: 59.8 kg

DRUGS (44)
  1. PROHANCE [Suspect]
     Indication: NUCLEAR MAGNETIC RESONANCE IMAGING
  2. AMLODIPINE BESYLATE [Concomitant]
  3. ACCUPRIL [Concomitant]
     Dosage: 40 MG BID
     Dates: start: 20031209
  4. IBUPROFEN [Concomitant]
  5. RENAGEL [Concomitant]
  6. CARDURA [Concomitant]
  7. DEPAKOTE [Concomitant]
  8. AMIODARONE HCL [Concomitant]
  9. ELAVIL [Concomitant]
     Indication: NEURALGIA
  10. OPTIMARK [Suspect]
     Indication: ANGIOGRAM
  11. MULTIHANCE [Suspect]
     Indication: ANGIOGRAM
  12. PRAVASTATIN [Concomitant]
     Indication: BLOOD PRESSURE INCREASED
  13. LABETALOL HCL [Concomitant]
     Dosage: 400 MG TID
  14. PHENYTOIN [Concomitant]
  15. ASPIRIN [Concomitant]
  16. OPTIMARK [Suspect]
     Indication: NUCLEAR MAGNETIC RESONANCE IMAGING
  17. METOPROLOL TARTRATE [Concomitant]
  18. MORPHINE [Concomitant]
  19. PLENDIL [Concomitant]
  20. LOVENOX [Concomitant]
  21. MULTIHANCE [Suspect]
     Indication: NUCLEAR MAGNETIC RESONANCE IMAGING
  22. METHADONE HCL [Concomitant]
     Indication: PAIN
  23. LIDOCAINE [Concomitant]
  24. VITAMIN K TAB [Concomitant]
  25. MAGNEVIST [Suspect]
     Indication: NUCLEAR MAGNETIC RESONANCE IMAGING
  26. OMNISCAN [Suspect]
     Indication: ANGIOGRAM
     Dosage: UNK
     Dates: start: 20030110, end: 20030110
  27. CLONIDINE [Concomitant]
  28. HEPARIN [Concomitant]
  29. LAMICTAL [Concomitant]
  30. FOLIC ACID [Concomitant]
     Indication: ANAEMIA
     Dosage: 800 ?G, UNK
  31. PROHANCE [Suspect]
     Indication: ANGIOGRAM
  32. ENOXAPARIN [Concomitant]
  33. PROMETHAZINE [Concomitant]
  34. NORVASC [Concomitant]
     Dosage: 10 MG BID
     Dates: start: 20031209
  35. CARDIZEM [Concomitant]
  36. COUMADIN [Concomitant]
  37. OPTIMARK [Suspect]
     Indication: NUCLEAR MAGNETIC RESONANCE IMAGING BRAIN
  38. PREDNISONE TAB [Concomitant]
  39. DIAZEPAM [Concomitant]
  40. MAGNEVIST [Suspect]
     Indication: ANGIOGRAM
     Dosage: UNK
     Dates: start: 20070118, end: 20070118
  41. OMNISCAN [Suspect]
     Indication: NUCLEAR MAGNETIC RESONANCE IMAGING
     Dates: start: 20030922, end: 20030922
  42. DILANTIN [Concomitant]
     Indication: EPILEPSY
  43. VICODIN [Concomitant]
  44. XANAX [Concomitant]
     Indication: ANXIETY
     Dosage: 0.25 MG, PRN

REACTIONS (27)
  - JOINT STIFFNESS [None]
  - JOINT RANGE OF MOTION DECREASED [None]
  - OEDEMA PERIPHERAL [None]
  - PRURITUS [None]
  - ANXIETY [None]
  - MYALGIA [None]
  - ATROPHY [None]
  - JOINT CONTRACTURE [None]
  - SKIN TIGHTNESS [None]
  - MUSCULAR WEAKNESS [None]
  - MUSCLE SPASTICITY [None]
  - PAIN IN EXTREMITY [None]
  - SKIN BURNING SENSATION [None]
  - DRY SKIN [None]
  - STRESS [None]
  - NEPHROGENIC SYSTEMIC FIBROSIS [None]
  - PAIN [None]
  - MUSCLE CONTRACTURE [None]
  - MUSCULOSKELETAL STIFFNESS [None]
  - FINGER DEFORMITY [None]
  - SKIN DISCOLOURATION [None]
  - SKIN SWELLING [None]
  - GAIT DISTURBANCE [None]
  - ARTHRALGIA [None]
  - SKIN HYPERTROPHY [None]
  - EXFOLIATIVE RASH [None]
  - SKIN INDURATION [None]
